FAERS Safety Report 9698216 (Version 2)
Quarter: 2013Q4

REPORT INFORMATION
  Report Type: Spontaneous
  Country: US (occurrence: None)
  Receive Date: 20131115
  Receipt Date: 20131126
  Transmission Date: 20140711
  Serious: Yes (Other)
  Sender: FDA-Public Use
  Company Number: 2013-US-002952

PATIENT
  Age: 71 Year
  Sex: Female

DRUGS (1)
  1. XYREM (SODIUM OXYBATE) ORAL SOLUTION, 500MG/ML [Suspect]
     Indication: SLEEP DISORDER
     Route: 048
     Dates: start: 201012

REACTIONS (6)
  - Foot fracture [None]
  - Fall [None]
  - Contusion [None]
  - Feeling drunk [None]
  - Somnolence [None]
  - Foot operation [None]
